FAERS Safety Report 8894860 (Version 1)
Quarter: 2012Q4

REPORT INFORMATION
  Report Type: 
  Country: US (occurrence: US)
  Receive Date: 20121108
  Receipt Date: 20121108
  Transmission Date: 20130627
  Serious: Yes (Other)
  Sender: FDA-Public Use
  Company Number: PHHY2012US085176

PATIENT
  Age: 87 Year
  Sex: Male
  Weight: 77.1 kg

DRUGS (6)
  1. GENTEAL GEL [Suspect]
     Indication: DRY EYE
     Dosage: 1 drp, in both eyes at night
     Route: 047
     Dates: start: 20120913, end: 20120916
  2. PREDNISONE [Concomitant]
     Dosage: 1 drp, daily
  3. FLOMAX ^CSL^ [Concomitant]
     Dosage: 8 mg, daily
  4. BENAZEPRIL [Concomitant]
     Dosage: 40 mg, in the morning
  5. WELLBUTRIN                         /00700502/ [Concomitant]
     Dosage: 150 mg, one in the morning and one at noon
  6. FINASTERIDE [Concomitant]
     Dosage: 5 mg, daily

REACTIONS (1)
  - Eye pruritus [Recovered/Resolved]
